FAERS Safety Report 5130727-8 (Version None)
Quarter: 2006Q4

REPORT INFORMATION
  Report Type: 
  Country: None (occurrence: None)
  Receive Date: 20061018
  Receipt Date: 20061018
  Transmission Date: 20070319
  Serious: Yes (Hospitalization)
  Sender: FDA-Public Use
  Company Number: None

PATIENT
  Sex: Female
  Weight: 98.8842 kg

DRUGS (14)
  1. PROCRIT [Suspect]
     Indication: ANAEMIA
     Dosage: 80,000 IU SQ WEEKLY
     Route: 058
     Dates: start: 20060609, end: 20060904
  2. CYTOXAN [Suspect]
     Indication: BREAST CANCER
     Dosage: 500 MG/M2 IV Q 3 WKS
     Route: 042
     Dates: start: 20060711, end: 20060825
  3. ADRIAMYCIN PFS [Suspect]
     Indication: BREAST CANCER
     Dosage: 50 MG/M2 IV Q3 WKS
     Route: 042
     Dates: start: 20060711, end: 20060825
  4. ABRAXANE [Suspect]
     Indication: BREAST CANCER
     Dosage: 175 MG/M2 IV Q 3 WKS
     Route: 042
     Dates: start: 20060714, end: 20060828
  5. ALBUTEROL [Concomitant]
  6. AMOXICILLIN [Concomitant]
  7. EPOGEN [Concomitant]
  8. NEULASTA [Concomitant]
  9. ARIXTRA SC [Concomitant]
  10. NEXIUM [Concomitant]
  11. WARFARIN SODIUM [Concomitant]
  12. ALLGERA-D [Concomitant]
  13. PULMICORT [Concomitant]
  14. ZYVOX [Concomitant]

REACTIONS (2)
  - ASTHMA [None]
  - BRONCHITIS [None]
